FAERS Safety Report 7645140 (Version 6)
Quarter: 2012Q4

REPORT INFORMATION
  Report Type: 
  Country: US (occurrence: US)
  Receive Date: 20101028
  Receipt Date: 20120829
  Transmission Date: 20130627
  Serious: Yes (Hospitalization, Disabling, Other)
  Sender: FDA-Public Use
  Company Number: US-009507513-1010USA03220

PATIENT

DRUGS (1)
  1. FOSAMAX [Suspect]
     Indication: OSTEOPENIA
     Dosage: 10 mg, UNK
     Route: 048
     Dates: start: 20020825, end: 20091213

REACTIONS (44)
  - Myocardial infarction [Unknown]
  - Fracture malunion [Unknown]
  - Arthropathy [Unknown]
  - Hypoacusis [Unknown]
  - Wrist fracture [Unknown]
  - Tonsillectomy [Unknown]
  - Renal failure [Unknown]
  - Arthralgia [Not Recovered/Not Resolved]
  - Femur fracture [Unknown]
  - Musculoskeletal disorder [Unknown]
  - Fracture [Unknown]
  - Pain [Unknown]
  - Back injury [Unknown]
  - Road traffic accident [Unknown]
  - Contusion [Recovering/Resolving]
  - Depression [Unknown]
  - Rosacea [Unknown]
  - Haemarthrosis [Unknown]
  - Hyperlipidaemia [Unknown]
  - Idiopathic urticaria [Unknown]
  - Vitamin B12 deficiency [Unknown]
  - Hypertension [Unknown]
  - Spinal column stenosis [Unknown]
  - Herpes zoster [Unknown]
  - Bacterial disease carrier [Unknown]
  - Asthenia [Unknown]
  - Chronic obstructive pulmonary disease [Unknown]
  - Hypercholesterolaemia [Unknown]
  - Malaise [Unknown]
  - Blood glucose increased [Unknown]
  - Fall [Unknown]
  - Dizziness [Unknown]
  - Muscle spasms [Unknown]
  - Back pain [Unknown]
  - Nausea [Unknown]
  - Musculoskeletal pain [Unknown]
  - Walking aid user [None]
  - Application site erythema [None]
  - Wound dehiscence [None]
  - Limb asymmetry [None]
  - Scoliosis [None]
  - Medical device pain [None]
  - Arthralgia [None]
  - Femur fracture [Unknown]
